FAERS Safety Report 10696896 (Version 4)
Quarter: 2016Q2

REPORT INFORMATION
  Report Type: Report from Study
  Country: BR (occurrence: BR)
  Receive Date: 20150108
  Receipt Date: 20160422
  Transmission Date: 20160815
  Serious: Yes (Other)
  Sender: FDA-Public Use
  Company Number: BR-ROCHE-1383455

PATIENT
  Age: 63 Year
  Sex: Female
  Weight: 96 kg

DRUGS (45)
  1. MABTHERA [Suspect]
     Active Substance: RITUXIMAB
     Route: 042
     Dates: start: 20130812
  2. MABTHERA [Suspect]
     Active Substance: RITUXIMAB
     Route: 042
     Dates: start: 20130826
  3. GLIMEPIRIDE. [Concomitant]
     Active Substance: GLIMEPIRIDE
  4. METHOTREXATE [Concomitant]
     Active Substance: METHOTREXATE
  5. REUQUINOL [Concomitant]
     Active Substance: HYDROXYCHLOROQUINE SULFATE
  6. HYDROCHLOROTHIAZIDE. [Concomitant]
     Active Substance: HYDROCHLOROTHIAZIDE
  7. MABTHERA [Suspect]
     Active Substance: RITUXIMAB
     Route: 042
     Dates: end: 201405
  8. VERAPAMIL [Concomitant]
     Active Substance: VERAPAMIL HYDROCHLORIDE
     Indication: CARDIAC DISORDER
     Route: 065
  9. VENLAFAXINE [Concomitant]
     Active Substance: VENLAFAXINE HYDROCHLORIDE
  10. ETNA [Concomitant]
     Active Substance: UNSPECIFIED INGREDIENT
  11. LABIRIN [Concomitant]
     Active Substance: BETAHISTINE
  12. ALPRAZOLAM. [Concomitant]
     Active Substance: ALPRAZOLAM
  13. SPIRONOLACTONE. [Concomitant]
     Active Substance: SPIRONOLACTONE
     Indication: CARDIAC DISORDER
     Route: 065
  14. CLONAZEPAM. [Concomitant]
     Active Substance: CLONAZEPAM
  15. METRONIDAZOLE. [Concomitant]
     Active Substance: METRONIDAZOLE
  16. ALPRAZOLAM. [Concomitant]
     Active Substance: ALPRAZOLAM
  17. TRAMADOL. [Concomitant]
     Active Substance: TRAMADOL
  18. PHENERGAN [Concomitant]
     Active Substance: PROMETHAZINE HYDROCHLORIDE
  19. MABTHERA [Suspect]
     Active Substance: RITUXIMAB
     Route: 042
     Dates: start: 20110606
  20. MABTHERA [Suspect]
     Active Substance: RITUXIMAB
     Route: 042
     Dates: start: 20120123
  21. HYDROCHLOROTHIAZIDE. [Concomitant]
     Active Substance: HYDROCHLOROTHIAZIDE
  22. ATENOLOL. [Concomitant]
     Active Substance: ATENOLOL
  23. MELOXICAM. [Concomitant]
     Active Substance: MELOXICAM
  24. MABTHERA [Suspect]
     Active Substance: RITUXIMAB
     Route: 042
     Dates: start: 20130201
  25. MABTHERA [Suspect]
     Active Substance: RITUXIMAB
     Route: 042
     Dates: start: 20130215
  26. MABTHERA [Suspect]
     Active Substance: RITUXIMAB
     Route: 042
     Dates: start: 20150215
  27. GABAPENTINE [Concomitant]
     Active Substance: GABAPENTIN
  28. ARAVA [Concomitant]
     Active Substance: LEFLUNOMIDE
  29. VIMOVO [Concomitant]
     Active Substance: ESOMEPRAZOLE MAGNESIUM\NAPROXEN
  30. LIMBITROL [Concomitant]
     Active Substance: AMITRIPTYLINE\CHLORDIAZEPOXIDE
  31. MABTHERA [Suspect]
     Active Substance: RITUXIMAB
     Indication: RHEUMATOID ARTHRITIS
     Dosage: 7 CYCLES
     Route: 042
     Dates: start: 20100601
  32. MABTHERA [Suspect]
     Active Substance: RITUXIMAB
     Route: 042
     Dates: start: 20120109
  33. MABTHERA [Suspect]
     Active Substance: RITUXIMAB
     Route: 042
     Dates: start: 20120625
  34. VELIJA [Suspect]
     Active Substance: DULOXETINE HYDROCHLORIDE
     Indication: PRODUCT USED FOR UNKNOWN INDICATION
     Route: 065
  35. VENLAFAXINE [Concomitant]
     Active Substance: VENLAFAXINE HYDROCHLORIDE
  36. MABTHERA [Suspect]
     Active Substance: RITUXIMAB
     Route: 042
     Dates: start: 20110620
  37. SIMVASTATIN. [Concomitant]
     Active Substance: SIMVASTATIN
  38. RETINOL [Concomitant]
     Active Substance: RETINOL
  39. GLIFAGE [Concomitant]
     Active Substance: METFORMIN HYDROCHLORIDE
  40. MABTHERA [Suspect]
     Active Substance: RITUXIMAB
     Route: 042
     Dates: start: 20100615
  41. MABTHERA [Suspect]
     Active Substance: RITUXIMAB
     Route: 042
     Dates: start: 20120709
  42. MABTHERA [Suspect]
     Active Substance: RITUXIMAB
     Route: 042
     Dates: end: 20150831
  43. PANTOPRAZOLE [Concomitant]
     Active Substance: PANTOPRAZOLE SODIUM
  44. PHENERGAN [Concomitant]
     Active Substance: PROMETHAZINE HYDROCHLORIDE
  45. EQUILID [Concomitant]
     Active Substance: SULPIRIDE

REACTIONS (18)
  - Depression [Unknown]
  - Hypertension [Unknown]
  - Pain in extremity [Not Recovered/Not Resolved]
  - Arthralgia [Not Recovered/Not Resolved]
  - Swelling [Unknown]
  - Drug ineffective [Unknown]
  - Bedridden [Not Recovered/Not Resolved]
  - Urinary tract infection [Unknown]
  - Panic disorder [Unknown]
  - Diabetes mellitus [Unknown]
  - Viral infection [Unknown]
  - Irritable bowel syndrome [Unknown]
  - Lung disorder [Unknown]
  - Weight decreased [Not Recovered/Not Resolved]
  - Abasia [Not Recovered/Not Resolved]
  - Cardiac disorder [Unknown]
  - Deafness [Not Recovered/Not Resolved]
  - Decreased appetite [Not Recovered/Not Resolved]

NARRATIVE: CASE EVENT DATE: 201412
